FAERS Safety Report 4370251-3 (Version None)
Quarter: 2004Q2

REPORT INFORMATION
  Report Type: 
  Country: None (occurrence: None)
  Receive Date: 20040603
  Receipt Date: 20040329
  Transmission Date: 20050107
  Serious: No
  Sender: FDA-Public Use
  Company Number: US-BRISTOL-MYERS SQUIBB COMPANY-12544805

PATIENT
  Age: 85 Year
  Sex: Female
  Weight: 55 kg

DRUGS (2)
  1. ABILIFY [Suspect]
     Dosage: CRUSHED IN FOOD
     Route: 048
     Dates: start: 20040326, end: 20040326
  2. DILTIAZEM HCL TABS [Concomitant]

REACTIONS (3)
  - ABDOMINAL PAIN [None]
  - CONSTIPATION [None]
  - MEDICATION ERROR [None]
